FAERS Safety Report 7996307-1 (Version None)
Quarter: 2011Q4

REPORT INFORMATION
  Report Type: 
  Country: None (occurrence: None)
  Receive Date: 20111220
  Receipt Date: 20111215
  Transmission Date: 20120403
  Serious: Yes (Hospitalization)
  Sender: FDA-Public Use
  Company Number: US-TYCO HEALTHCARE/MALLINCKRODT-T201102055

PATIENT
  Sex: Female

DRUGS (12)
  1. ASPIRIN [Concomitant]
     Indication: PROPHYLAXIS
     Dosage: 81 MG, QD
  2. POTASSIUM [Concomitant]
     Dosage: 25 MG, QD
  3. OXYCODONE HCL AND ACETAMINOPHEN [Concomitant]
     Indication: PAIN
     Dosage: 10/650 MG 4 TO 6 HOURS AS NEEDED
  4. LASIX [Concomitant]
     Indication: FLUID RETENTION
     Dosage: 20 MG, QD
  5. RANITIDINE [Concomitant]
     Indication: DYSPEPSIA
     Dosage: 75 MG, BID
  6. METOPROLOL TARTRATE [Concomitant]
     Indication: CARDIAC DISORDER
     Dosage: 25 MG, BID
  7. MIRAPEX [Concomitant]
     Indication: RESTLESS LEGS SYNDROME
     Dosage: .25 MG, QD
  8. LIPITOR [Concomitant]
     Indication: CARDIAC DISORDER
     Dosage: 10 MG, QD
  9. SPIRONOLACTONE [Concomitant]
     Indication: CARDIAC DISORDER
     Dosage: 25 MG, QD
  10. ZOLOFT [Concomitant]
     Indication: DEPRESSION
     Dosage: 150 MG, QD
  11. BUSPAR [Concomitant]
     Dosage: UNK
  12. FENTANYL-100 [Suspect]
     Indication: PAIN
     Dosage: 100 UG/HR, Q72 HOURS
     Dates: start: 20111001

REACTIONS (6)
  - MALAISE [None]
  - ERYTHEMA [None]
  - DEHYDRATION [None]
  - BLOOD POTASSIUM INCREASED [None]
  - DRUG EFFECT INCREASED [None]
  - APPLICATION SITE BURN [None]
